FAERS Safety Report 23328955 (Version 1)
Quarter: 2023Q4

REPORT INFORMATION
  Report Type: Spontaneous
  Country: FR (occurrence: FR)
  Receive Date: 20231222
  Receipt Date: 20231222
  Transmission Date: 20240110
  Serious: Yes (Other)
  Sender: FDA-Public Use
  Company Number: FR-UCBSA-2023052619

PATIENT
  Sex: Female

DRUGS (1)
  1. BIMZELX [Suspect]
     Active Substance: BIMEKIZUMAB-BKZX
     Indication: Psoriasis
     Dosage: UNK
     Dates: start: 202210, end: 202304

REACTIONS (2)
  - Muscular weakness [Recovering/Resolving]
  - Skin discolouration [Unknown]

NARRATIVE: CASE EVENT DATE: 20230401
